FAERS Safety Report 5683023-4 (Version None)
Quarter: 2008Q1

REPORT INFORMATION
  Report Type: 
  Country: None (occurrence: None)
  Receive Date: 20080327
  Receipt Date: 20080326
  Transmission Date: 20080703
  Serious: Yes (Hospitalization)
  Sender: FDA-Public Use
  Company Number: PL-BRISTOL-MYERS SQUIBB COMPANY-13583406

PATIENT
  Age: 60 Year
  Sex: Female
  Weight: 55 kg

DRUGS (6)
  1. PACLITAXEL [Suspect]
     Indication: BLADDER CANCER
     Dates: start: 20030121, end: 20030121
  2. CISPLATIN [Suspect]
     Indication: BLADDER CANCER
     Dates: start: 20030114, end: 20030114
  3. GEMCITABINE [Suspect]
     Indication: BLADDER CANCER
     Dates: start: 20030121, end: 20030121
  4. KETONAL [Concomitant]
     Dates: start: 20021202
  5. ONDANSETRON [Concomitant]
     Dates: start: 20021202
  6. LORAZEPAM [Concomitant]
     Dates: start: 20021202

REACTIONS (1)
  - HAEMORRHAGE [None]
